FAERS Safety Report 7101877-1 (Version None)
Quarter: 2010Q4

REPORT INFORMATION
  Report Type: 
  Country: None (occurrence: None)
  Receive Date: 20101108
  Receipt Date: 20100929
  Transmission Date: 20110411
  Serious: Yes (Death)
  Sender: FDA-Public Use
  Company Number: GB-DEXPHARM-20101528

PATIENT
  Age: 57 Year
  Sex: Male

DRUGS (8)
  1. CHLORHEXIDINE [Suspect]
     Dosage: CUTANEOUS
     Route: 003
     Dates: start: 20100614, end: 20100614
  2. ADALAT [Concomitant]
  3. ASPIRIN [Concomitant]
  4. ATORVASTATIN CALCIUM [Concomitant]
  5. BISOPROLOL [Concomitant]
  6. COAPROVEL (HYDROCHLOROTHIAZIDE AND IRBESARTAN) [Concomitant]
  7. LANSOPRAZOLE [Concomitant]
  8. WARFARIN [Concomitant]

REACTIONS (3)
  - ALLERGY TO CHEMICALS [None]
  - ANAPHYLACTIC SHOCK [None]
  - CARDIAC ARREST [None]
